FAERS Safety Report 8843127 (Version 1)
Quarter: 2012Q4

REPORT INFORMATION
  Report Type: 
  Country: US (occurrence: US)
  Receive Date: 20121016
  Receipt Date: 20121016
  Transmission Date: 20130627
  Serious: No
  Sender: FDA-Public Use
  Company Number: US-VERTEX PHARMACEUTICAL INC.-2012-022373

PATIENT
  Sex: Female

DRUGS (17)
  1. VX-950 [Suspect]
     Indication: HEPATITIS C
     Dosage: 750 mg, tid
     Dates: start: 2012, end: 201209
  2. RIBASPHERE [Concomitant]
     Indication: HEPATITIS C
     Dosage: 600 mg, bid
     Dates: start: 2012, end: 201209
  3. PEGASYS [Concomitant]
     Indication: HEPATITIS C
     Dosage: 180 ?g, UNK
     Route: 058
     Dates: start: 2012, end: 201209
  4. METHOCARBAMOL [Concomitant]
     Dosage: 500 mg, UNK
  5. ALLOPURINOL [Concomitant]
     Dosage: 300 mg, UNK
  6. ESTRADIOL [Concomitant]
     Dosage: 0.5 mg, UNK
  7. POTASSIUM CL ER [Concomitant]
     Dosage: 8 MEQ
  8. OXYCODONE HCL [Concomitant]
     Dosage: 10 mg, UNK
  9. ECHINACEA                          /01323501/ [Concomitant]
     Dosage: 125 mg, UNK
  10. BIOTIN [Concomitant]
     Dosage: 1000 ?g, UNK
  11. CALCIUM 500+D [Concomitant]
  12. FLEXERIL                           /00428402/ [Concomitant]
     Dosage: 10 mg, UNK
  13. EQL MILK THISTLE [Concomitant]
     Dosage: 175 mg, UNK
  14. OMEPRAZOLE DR [Concomitant]
     Dosage: 20 mg, UNK
  15. LECITHIN [Concomitant]
     Dosage: 1200 mg, UNK
  16. VITAMIN B-12 [Concomitant]
     Dosage: 1000 ?g, UNK
  17. SUPER OMEGA-3 SOFTGEL [Concomitant]

REACTIONS (3)
  - Leukopenia [Unknown]
  - Treatment failure [Unknown]
  - Anaemia [Unknown]
